FAERS Safety Report 19471145 (Version 1)
Quarter: 2021Q2

REPORT INFORMATION
  Report Type: Spontaneous
  Country: CA (occurrence: CA)
  Receive Date: 20210628
  Receipt Date: 20210628
  Transmission Date: 20210717
  Serious: No
  Sender: FDA-Public Use
  Company Number: CA-APC-202100126

PATIENT
  Age: 20 Year
  Sex: Female
  Weight: 56 kg

DRUGS (3)
  1. NATESTO [Suspect]
     Active Substance: TESTOSTERONE
     Indication: HORMONE REPLACEMENT THERAPY
     Dosage: METERED DOSE PUMP DELIVERING 5.5 MG TESTOSTERONE /ACTUATION ,
     Route: 045
  2. NATESTO [Suspect]
     Active Substance: TESTOSTERONE
     Indication: TRANS-SEXUALISM
     Dosage: METERED DOSE PUMP DELIVERING 5.5 MG TESTOSTERONE /ACTUATION ,
     Route: 045
  3. NATESTO [Suspect]
     Active Substance: TESTOSTERONE
     Indication: VIRILISM
     Dosage: METERED DOSE PUMP DELIVERING 5.5 MG TESTOSTERONE /ACTUATION ,
     Route: 045

REACTIONS (8)
  - Eye swelling [Recovered/Resolved]
  - Hypersensitivity [Recovered/Resolved]
  - Lip swelling [Recovered/Resolved]
  - Off label use [Unknown]
  - Scab [Recovered/Resolved]
  - Instillation site pustules [Recovered/Resolved]
  - Swelling face [Recovered/Resolved]
  - Urticaria [Recovered/Resolved]
